FAERS Safety Report 16897127 (Version 1)
Quarter: 2019Q4

REPORT INFORMATION
  Report Type: Spontaneous
  Country: US (occurrence: US)
  Receive Date: 20191009
  Receipt Date: 20191009
  Transmission Date: 20200122
  Serious: Yes (Other)
  Sender: FDA-Public Use
  Company Number: US-LUPIN PHARMACEUTICALS INC.-2018-08973

PATIENT
  Sex: Female

DRUGS (2)
  1. AZITHROMYCIN TABLETS USP, 250 MG [Suspect]
     Active Substance: AZITHROMYCIN ANHYDROUS
     Indication: TOOTH EXTRACTION
     Dosage: 250 MG, BID
     Route: 048
     Dates: start: 20181210
  2. AZITHROMYCIN TABLETS USP, 250 MG [Suspect]
     Active Substance: AZITHROMYCIN ANHYDROUS
     Dosage: 250 MG, QD
     Route: 048

REACTIONS (4)
  - Speech disorder [Recovered/Resolved]
  - Mouth swelling [Recovered/Resolved]
  - Pharyngeal swelling [Recovered/Resolved]
  - Burning sensation [Recovered/Resolved]
